FAERS Safety Report 15424082 (Version 1)
Quarter: 2018Q3

REPORT INFORMATION
  Report Type: Spontaneous
  Country: US (occurrence: US)
  Receive Date: 20180921
  Receipt Date: 20180921
  Transmission Date: 20181010
  Serious: Yes (Other)
  Sender: FDA-Public Use
  Company Number: None

PATIENT
  Age: 28 Year
  Sex: Male
  Weight: 67.5 kg

DRUGS (3)
  1. CLONAZEPAM. [Concomitant]
     Active Substance: CLONAZEPAM
  2. CLONAZEPAM. [Suspect]
     Active Substance: CLONAZEPAM
     Indication: ANXIETY
     Dosage: ?          QUANTITY:3 TABLET(S);?
     Route: 048
     Dates: start: 20180720, end: 20180820
  3. CLONAZEPAM. [Suspect]
     Active Substance: CLONAZEPAM
     Indication: POST-TRAUMATIC STRESS DISORDER

REACTIONS (5)
  - Product substitution issue [None]
  - Gastrointestinal inflammation [None]
  - Gastritis [None]
  - Gastrooesophageal reflux disease [None]
  - Urticaria [None]

NARRATIVE: CASE EVENT DATE: 20180805
